FAERS Safety Report 15432950 (Version 1)
Quarter: 2018Q3

REPORT INFORMATION
  Report Type: Spontaneous
  Country: FI (occurrence: FI)
  Receive Date: 20180927
  Receipt Date: 20180927
  Transmission Date: 20181010
  Serious: No
  Sender: FDA-Public Use
  Company Number: FI-NOVEN PHARMACEUTICALS, INC.-FI2017001355

PATIENT

DRUGS (1)
  1. ESTRADIOL/NORETHISTERONE ACETATE [Suspect]
     Active Substance: ESTRADIOL\NORETHINDRONE ACETATE
     Indication: PRODUCT USED FOR UNKNOWN INDICATION
     Dosage: 0.5 DF, HALF A PATCH EVERY 3?4 DAYS
     Route: 062

REACTIONS (3)
  - Underdose [Unknown]
  - Medication error [Unknown]
  - Drug prescribing error [Unknown]
